FAERS Safety Report 7269227-8 (Version None)
Quarter: 2011Q1

REPORT INFORMATION
  Report Type: 
  Country: None (occurrence: None)
  Receive Date: 20110124
  Receipt Date: 20101231
  Transmission Date: 20110831
  Serious: Yes (Death)
  Sender: FDA-Public Use
  Company Number: AUR-APL-2011-00038

PATIENT
  Age: 70 Year
  Sex: Female

DRUGS (17)
  1. CLONAZEPAM [Suspect]
  2. CHLORDIAZEPOXIDE [Suspect]
  3. METHADONE [Suspect]
  4. TORSEMIDE [Suspect]
  5. PREGABALIN [Suspect]
  6. DULOXETINE [Suspect]
  7. MELOXICAM [Suspect]
  8. DESIPRAMIDE HCL [Suspect]
  9. CYCLOBENZAPRINE [Suspect]
  10. HYDROMORPHONE HCL [Suspect]
  11. ACETAMINOPHEN AND OXYCODONE HCL [Suspect]
  12. LOVASTATIN [Suspect]
  13. FLUOXETINE [Suspect]
  14. LISINOPRIL [Suspect]
  15. FOLIC ACID [Suspect]
  16. CALCIUM CARBONATE [Suspect]
  17. ACETAMINOPHEN [Suspect]

REACTIONS (3)
  - INTENTIONAL DRUG MISUSE [None]
  - COMPLETED SUICIDE [None]
  - TOXICITY TO VARIOUS AGENTS [None]
